FAERS Safety Report 7502865-3 (Version None)
Quarter: 2011Q2

REPORT INFORMATION
  Report Type: 
  Country: None (occurrence: None)
  Receive Date: 20110525
  Receipt Date: 20100817
  Transmission Date: 20111010
  Serious: No
  Sender: FDA-Public Use
  Company Number: US-NOVEN-ALL1-2010-04353

PATIENT

DRUGS (7)
  1. ROZEREM [Concomitant]
     Dosage: 8 MG, 1X/DAY:QD
     Route: 048
     Dates: start: 19970101
  2. PROVENTIL                          /00139501/ [Concomitant]
     Dosage: UNK, AS REQ'D (2 PUFFS)
     Route: 055
     Dates: start: 19990101
  3. CLONIDINE [Concomitant]
     Dosage: .1 MG, AS REQ'D
     Route: 048
     Dates: start: 20040101
  4. CLONIDINE [Concomitant]
     Dosage: .1 MG, 3X/DAY:TID
     Route: 048
     Dates: start: 20040101
  5. RISPERDAL [Concomitant]
     Dosage: .5 MG, 1X/DAY:QD
     Route: 048
     Dates: start: 20040101
  6. DAYTRANA [Suspect]
     Dosage: 10 MG, 1X/DAY:QD
     Route: 062
     Dates: start: 20100817
  7. TOPAMAX [Concomitant]
     Dosage: 50 MG, 1X/DAY:QD
     Route: 048

REACTIONS (3)
  - NO ADVERSE EVENT [None]
  - PRODUCT QUALITY ISSUE [None]
  - WRONG TECHNIQUE IN DRUG USAGE PROCESS [None]
